FAERS Safety Report 10880615 (Version 2)
Quarter: 2015Q1

REPORT INFORMATION
  Report Type: Report from Study
  Country: CO (occurrence: CO)
  Receive Date: 20150303
  Receipt Date: 20150313
  Transmission Date: 20150721
  Serious: Yes (Hospitalization, Disabling, Other)
  Sender: FDA-Public Use
  Company Number: CO-AMGEN-COLSL2015018145

PATIENT
  Age: 29 Year
  Sex: Male
  Weight: 52 kg

DRUGS (1)
  1. VECTIBIX [Suspect]
     Active Substance: PANITUMUMAB
     Indication: COLORECTAL CANCER METASTATIC
     Dosage: 275 MG, EVERY 20 DAYS
     Route: 042
     Dates: start: 20141008, end: 20150221

REACTIONS (2)
  - Abdominal distension [Recovering/Resolving]
  - Pelvic pain [Recovered/Resolved with Sequelae]

NARRATIVE: CASE EVENT DATE: 20150224
